FAERS Safety Report 10050173 (Version 1)
Quarter: 2014Q1

REPORT INFORMATION
  Report Type: Spontaneous
  Country: US (occurrence: None)
  Receive Date: 20140331
  Receipt Date: 20140331
  Transmission Date: 20141002
  Serious: Yes (Other)
  Sender: FDA-Public Use
  Company Number: None

PATIENT
  Age: 34 Year
  Sex: Female

DRUGS (2)
  1. VENLAFAXINE EFFEXOR 150MG [Suspect]
     Indication: DEPRESSION
     Dosage: 1/DAY, ONCE DAILY, TAKEN BY MOUTH
     Route: 048
  2. VENLAFAXINE EFFEXOR 150MG [Suspect]
     Indication: ANXIETY
     Dosage: 1/DAY, ONCE DAILY, TAKEN BY MOUTH
     Route: 048

REACTIONS (6)
  - Vomiting [None]
  - Heart rate increased [None]
  - Hyperhidrosis [None]
  - Dizziness [None]
  - Dyspnoea [None]
  - Myocardial infarction [None]
